FAERS Safety Report 4993123-X (Version None)
Quarter: 2006Q1

REPORT INFORMATION
  Report Type: 
  Country: None (occurrence: None)
  Receive Date: 20060313
  Receipt Date: 20051109
  Transmission Date: 20060701
  Serious: No
  Sender: FDA-Public Use
  Company Number: 2005-BP-18823BP

PATIENT
  Age: 68 Year
  Sex: Female

DRUGS (9)
  1. SPIRIVA [Suspect]
     Indication: CHRONIC OBSTRUCTIVE PULMONARY DISEASE
     Dosage: 18 MCG (18 MCG, 1 CAP DAILY), IH
     Route: 055
     Dates: start: 20051018, end: 20051022
  2. ADVAIR DISKUS 100/50 [Suspect]
  3. CENESTIN [Concomitant]
  4. CELEXA [Concomitant]
  5. MULTI-VITAMIN [Concomitant]
  6. NASONEX (MOEMTASONE FUROATE) [Concomitant]
  7. ALBUTEROL SULFATE AUTOHALER [Concomitant]
  8. ALLEGRA [Concomitant]
  9. CALCIUM GLUCONATE [Concomitant]

REACTIONS (1)
  - HEADACHE [None]
